FAERS Safety Report 14313297 (Version 1)
Quarter: 2017Q4

REPORT INFORMATION
  Report Type: Spontaneous
  Country: AT (occurrence: AT)
  Receive Date: 20171221
  Receipt Date: 20171221
  Transmission Date: 20180321
  Serious: Yes (Other)
  Sender: FDA-Public Use
  Company Number: AT-ASTRAZENECA-2017SF27146

PATIENT
  Age: 49 Year
  Sex: Male
  Weight: 100 kg

DRUGS (3)
  1. SEROQUEL [Suspect]
     Active Substance: QUETIAPINE FUMARATE
     Dosage: 1 DF= UNITS NOT SPECIFIED; DOSE WAS DECREASED FROM 75 MG TO 25 MG ON 13JAN09
     Route: 048
  2. ABILIFY [Suspect]
     Active Substance: ARIPIPRAZOLE
     Indication: BIPOLAR DISORDER
     Dosage: 1 DF= UNITS NOT SPECIFIED DOSE WAS INCREASED FROM 15 MG/DAY TO 20 MG/DAY ON 13JAN09, 20 MG
     Route: 048
     Dates: start: 2006
  3. LAMOTRIGINE. [Suspect]
     Active Substance: LAMOTRIGINE
     Dosage: 1 DF= UNITS NOT SPECIFIED; DOSE WAS 400 MG/DAY, 400 MG
     Route: 048

REACTIONS (4)
  - Suicide attempt [Recovered/Resolved]
  - Intentional overdose [Unknown]
  - Sedation [Unknown]
  - Extrapyramidal disorder [Recovered/Resolved]

NARRATIVE: CASE EVENT DATE: 20090320
